FAERS Safety Report 7510409-5 (Version None)
Quarter: 2011Q2

REPORT INFORMATION
  Report Type: 
  Country: None (occurrence: None)
  Receive Date: 20110527
  Receipt Date: 20110520
  Transmission Date: 20111010
  Serious: Yes (Hospitalization, Other)
  Sender: FDA-Public Use
  Company Number: US-MERCK-1105USA01982

PATIENT
  Age: 58 Year
  Sex: Male
  Weight: 99 kg

DRUGS (9)
  1. PERCOCET [Concomitant]
     Route: 065
  2. COLESTID [Concomitant]
     Route: 065
  3. METFORMIN [Concomitant]
     Route: 065
  4. LIPITOR [Concomitant]
     Route: 065
  5. ATENOLOL [Concomitant]
     Route: 065
  6. VYTORIN [Suspect]
     Indication: BLOOD CHOLESTEROL INCREASED
     Route: 048
     Dates: start: 20030101, end: 20110511
  7. PLAVIX [Concomitant]
     Route: 065
  8. JANUVIA [Concomitant]
     Route: 065
  9. ASPIRIN [Concomitant]
     Route: 065

REACTIONS (36)
  - MUSCLE SPASMS [None]
  - CHRONIC OBSTRUCTIVE PULMONARY DISEASE [None]
  - PAIN [None]
  - BACK PAIN [None]
  - HYPERTENSION [None]
  - ROTATOR CUFF SYNDROME [None]
  - PERIPHERAL VASCULAR DISORDER [None]
  - CONSTIPATION [None]
  - SINUSITIS [None]
  - DIARRHOEA [None]
  - NEUROPATHY PERIPHERAL [None]
  - NAUSEA [None]
  - TOOTHACHE [None]
  - OSTEOARTHRITIS [None]
  - LIMB INJURY [None]
  - UPPER RESPIRATORY TRACT INFECTION [None]
  - OEDEMA PERIPHERAL [None]
  - MUSCULOSKELETAL PAIN [None]
  - PEPTIC ULCER [None]
  - DIZZINESS POSTURAL [None]
  - ABDOMINAL PAIN [None]
  - CELLULITIS [None]
  - MEMORY IMPAIRMENT [None]
  - OTITIS MEDIA [None]
  - ASTHENIA [None]
  - VOMITING [None]
  - MUSCULAR WEAKNESS [None]
  - CORONARY ARTERY DISEASE [None]
  - COUGH [None]
  - DRUG HYPERSENSITIVITY [None]
  - GASTRITIS [None]
  - SYNOVIAL CYST [None]
  - MUSCLE RUPTURE [None]
  - MYALGIA [None]
  - WEIGHT DECREASED [None]
  - BLOOD TRIGLYCERIDES INCREASED [None]
